FAERS Safety Report 8610718-2 (Version None)
Quarter: 2012Q3

REPORT INFORMATION
  Report Type: 
  Country: None (occurrence: None)
  Receive Date: 20120822
  Receipt Date: 20120814
  Transmission Date: 20120928
  Serious: Yes (Other)
  Sender: FDA-Public Use
  Company Number: US-US-EMD SERONO, INC.-7153384

PATIENT
  Sex: Male
  Weight: 110 kg

DRUGS (3)
  1. REBIF [Suspect]
     Indication: MULTIPLE SCLEROSIS
     Route: 058
     Dates: start: 20090301
  2. AMBIEN CR [Concomitant]
     Indication: INSOMNIA
     Route: 048
     Dates: start: 20120530
  3. REBIF [Suspect]
     Route: 058
     Dates: start: 20100616

REACTIONS (2)
  - INJECTION SITE CELLULITIS [None]
  - INJECTION SITE ABSCESS [None]
